FAERS Safety Report 20607420 (Version 1)
Quarter: 2022Q1

REPORT INFORMATION
  Report Type: Spontaneous
  Country: US (occurrence: US)
  Receive Date: 20220317
  Receipt Date: 20220317
  Transmission Date: 20220424
  Serious: Yes (Other)
  Sender: FDA-Public Use
  Company Number: US-PFIZER INC-202200405054

PATIENT
  Age: 73 Year
  Sex: Male

DRUGS (1)
  1. XELJANZ XR [Suspect]
     Active Substance: TOFACITINIB CITRATE
     Dosage: UNK
     Dates: start: 20170311

REACTIONS (5)
  - Aortic stenosis [Unknown]
  - Aortic aneurysm [Unknown]
  - Heart rate irregular [Unknown]
  - Dyspnoea [Recovered/Resolved]
  - Blood pressure increased [Recovered/Resolved]
